FAERS Safety Report 18519626 (Version 3)
Quarter: 2020Q4

REPORT INFORMATION
  Report Type: Spontaneous
  Country: PL (occurrence: PL)
  Receive Date: 20201119
  Receipt Date: 20201221
  Transmission Date: 20210114
  Serious: Yes (Hospitalization, Other)
  Sender: FDA-Public Use
  Company Number: PL-ROCHE-2716375

PATIENT
  Age: 25 Year
  Sex: Male
  Weight: 78 kg

DRUGS (2)
  1. HEMLIBRA [Suspect]
     Active Substance: EMICIZUMAB-KXWH
     Indication: FACTOR VIII DEFICIENCY
     Dosage: LOADING DOSE, 4 DOSES (234 MG)
     Route: 058
     Dates: start: 20171024, end: 20191205
  2. HEMLIBRA [Suspect]
     Active Substance: EMICIZUMAB-KXWH
     Dosage: MAINTENANCE DOSE
     Route: 058
     Dates: start: 20200706

REACTIONS (5)
  - Anaemia [Recovering/Resolving]
  - Gingival bleeding [Recovering/Resolving]
  - Skin disorder [Unknown]
  - Loose tooth [Unknown]
  - Fatigue [Unknown]

NARRATIVE: CASE EVENT DATE: 202007
